FAERS Safety Report 18717696 (Version 24)
Quarter: 2025Q3

REPORT INFORMATION
  Report Type: Report from Study
  Country: US (occurrence: US)
  Receive Date: 20210108
  Receipt Date: 20250821
  Transmission Date: 20251021
  Serious: Yes (Other)
  Sender: TAKEDA
  Company Number: US-TAKEDA-2021TUS000261

PATIENT
  Age: 67 Year
  Sex: Female
  Weight: 82 kg

DRUGS (39)
  1. HUMAN IMMUNOGLOBULIN G [Suspect]
     Active Substance: HUMAN IMMUNOGLOBULIN G
     Indication: Immunodeficiency common variable
     Dosage: 8 GRAM, 1/WEEK
     Dates: start: 20201213
  2. HUMAN IMMUNOGLOBULIN G [Suspect]
     Active Substance: HUMAN IMMUNOGLOBULIN G
     Indication: IgG deficiency
  3. HUMAN IMMUNOGLOBULIN G [Suspect]
     Active Substance: HUMAN IMMUNOGLOBULIN G
     Indication: IgG deficiency
     Dosage: 400 MG/KG, Q4WEEKS
  4. HUMAN IMMUNOGLOBULIN G [Suspect]
     Active Substance: HUMAN IMMUNOGLOBULIN G
     Indication: Immunodeficiency common variable
  5. DIPHENHYDRAMINE [Concomitant]
     Active Substance: DIPHENHYDRAMINE
  6. SODIUM CHLORIDE [Concomitant]
     Active Substance: SODIUM CHLORIDE
  7. EPINEPHRINE [Concomitant]
     Active Substance: EPINEPHRINE
  8. ACETAMINOPHEN [Concomitant]
     Active Substance: ACETAMINOPHEN
  9. BETAHISTINE [Concomitant]
     Active Substance: BETAHISTINE
  10. SYNTHROID [Concomitant]
     Active Substance: LEVOTHYROXINE SODIUM
  11. PROAIR HFA [Concomitant]
     Active Substance: ALBUTEROL SULFATE
  12. MAGNESIUM [Concomitant]
     Active Substance: MAGNESIUM
  13. ADVAIR HFA [Concomitant]
     Active Substance: FLUTICASONE PROPIONATE\SALMETEROL XINAFOATE
  14. PLAVIX [Concomitant]
     Active Substance: CLOPIDOGREL BISULFATE
  15. LIDOCAINE [Concomitant]
     Active Substance: LIDOCAINE
  16. CORDRAN [Concomitant]
     Active Substance: FLURANDRENOLIDE
  17. Lmx [Concomitant]
  18. HIZENTRA [Concomitant]
     Active Substance: HUMAN IMMUNOGLOBULIN G
  19. CRESTOR [Concomitant]
     Active Substance: ROSUVASTATIN CALCIUM
  20. VITAMIN B COMPLEX [Concomitant]
     Active Substance: CYANOCOBALAMIN\DEXPANTHENOL\NIACINAMIDE\PYRIDOXINE HYDROCHLORIDE\RIBOFLAVIN 5^-PHOSPHATE SODIUM\THIA
  21. COENZYME Q10 [Concomitant]
     Active Substance: DIETARY SUPPLEMENT\UBIDECARENONE
  22. VITAMIN D2 [Concomitant]
     Active Substance: ERGOCALCIFEROL
  23. ESTROGENS, CONJUGATED\METHYLTESTOSTERONE [Concomitant]
     Active Substance: ESTROGENS, CONJUGATED\METHYLTESTOSTERONE
  24. PROAIR HFA [Concomitant]
     Active Substance: ALBUTEROL SULFATE
  25. TIMOLOL [Concomitant]
     Active Substance: TIMOLOL
  26. BRIMONIDINE [Concomitant]
     Active Substance: BRIMONIDINE TARTRATE
  27. DORZOLAMIDE [Concomitant]
     Active Substance: DORZOLAMIDE
  28. LATANOPROST [Concomitant]
     Active Substance: LATANOPROST
  29. TESTOSTERONE [Concomitant]
     Active Substance: TESTOSTERONE
  30. VITAMIN D [Concomitant]
     Active Substance: VITAMIN D NOS
  31. ACITRETIN [Concomitant]
     Active Substance: ACITRETIN
  32. ASPIRIN [Concomitant]
     Active Substance: ASPIRIN
  33. DIPHENHYDRAMINE HYDROCHLORIDE [Concomitant]
     Active Substance: DIPHENHYDRAMINE HYDROCHLORIDE
  34. REPATHA [Concomitant]
     Active Substance: EVOLOCUMAB
  35. ESTRADIOL [Concomitant]
     Active Substance: ESTRADIOL
     Dosage: UNK UNK, 1/WEEK
  36. ASPIRIN [Concomitant]
     Active Substance: ASPIRIN
  37. CEPHALEXIN [Concomitant]
     Active Substance: CEPHALEXIN
  38. DUPIXENT [Concomitant]
     Active Substance: DUPILUMAB
  39. RIZATRIPTAN [Concomitant]
     Active Substance: RIZATRIPTAN

REACTIONS (27)
  - Postoperative wound infection [Unknown]
  - Squamous cell carcinoma [Unknown]
  - Skin cancer [Unknown]
  - COVID-19 pneumonia [Recovering/Resolving]
  - Thrombosis [Unknown]
  - Glaucoma [Unknown]
  - Cystitis [Unknown]
  - Weight decreased [Unknown]
  - Ear infection [Unknown]
  - Emphysema [Unknown]
  - Tinnitus [Unknown]
  - Vestibular migraine [Unknown]
  - Perfume sensitivity [Unknown]
  - Weight increased [Unknown]
  - Urinary tract infection [Unknown]
  - Cellulitis [Recovered/Resolved]
  - Allergy to chemicals [Unknown]
  - Fungal infection [Unknown]
  - Staphylococcal infection [Unknown]
  - Vertigo [Unknown]
  - Throat tightness [Unknown]
  - Hypersensitivity [Unknown]
  - Dyspnoea [Unknown]
  - Abdominal pain [Unknown]
  - Arthralgia [Unknown]
  - Fatigue [Unknown]
  - Localised infection [Unknown]

NARRATIVE: CASE EVENT DATE: 20210401
